FAERS Safety Report 15595836 (Version 1)
Quarter: 2018Q4

REPORT INFORMATION
  Report Type: Spontaneous
  Country: BR (occurrence: BR)
  Receive Date: 20181107
  Receipt Date: 20181107
  Transmission Date: 20190205
  Serious: Yes (Other)
  Sender: FDA-Public Use
  Company Number: BR-AMGEN-BRASP2015066631

PATIENT
  Age: 61 Year
  Sex: Female
  Weight: 64 kg

DRUGS (4)
  1. ENBREL [Suspect]
     Active Substance: ETANERCEPT
     Indication: RHEUMATOID ARTHRITIS
     Dosage: 50 MG, ONCE WEEKLY (EVERY MONDAY)
     Route: 058
     Dates: start: 2010
  2. HYDROCHLOROTHIAZIDE. [Concomitant]
     Active Substance: HYDROCHLOROTHIAZIDE
     Indication: BLOOD PRESSURE INCREASED
     Dosage: 25 MG, 1X/DAY (MORNING)
     Dates: start: 2009
  3. TECNOMET [Concomitant]
     Active Substance: METHOTREXATE
     Dosage: 4 UNITS OF 2.5MG ONCE WEEKLY
     Route: 065
     Dates: start: 201101
  4. LOSARTAN. [Concomitant]
     Active Substance: LOSARTAN
     Indication: BLOOD PRESSURE INCREASED
     Dosage: 50 MG, 1X/DAY (MORNING)
     Dates: start: 2012

REACTIONS (15)
  - Injection site swelling [Recovered/Resolved]
  - Injection site warmth [Recovered/Resolved]
  - Injection site erythema [Recovered/Resolved]
  - Inguinal hernia [Unknown]
  - Hypersensitivity [Recovered/Resolved]
  - Injection site discomfort [Recovered/Resolved]
  - Injection site injury [Recovered/Resolved]
  - Hepatic steatosis [Unknown]
  - Needle issue [Unknown]
  - Ovarian cyst [Unknown]
  - Fear of injection [Not Recovered/Not Resolved]
  - Injection site irritation [Recovered/Resolved]
  - Injection site pain [Recovered/Resolved]
  - Injection site pruritus [Recovered/Resolved]
  - Injection site hypersensitivity [Recovered/Resolved]
